FAERS Safety Report 23903279 (Version 2)
Quarter: 2024Q2

REPORT INFORMATION
  Report Type: Spontaneous
  Country: US (occurrence: US)
  Receive Date: 20240527
  Receipt Date: 20240531
  Transmission Date: 20240716
  Serious: No
  Sender: FDA-Public Use
  Company Number: US-AMGEN-USASP2024102528

PATIENT
  Sex: Female

DRUGS (1)
  1. EVENITY [Suspect]
     Active Substance: ROMOSOZUMAB-AQQG
     Indication: Osteoporosis
     Dosage: UNK
     Route: 065

REACTIONS (6)
  - Chest discomfort [Unknown]
  - Paraesthesia [Unknown]
  - Amnesia [Unknown]
  - Headache [Unknown]
  - Dyspnoea [Unknown]
  - Tendonitis [Unknown]
